FAERS Safety Report 5790111-0 (Version None)
Quarter: 2008Q2

REPORT INFORMATION
  Report Type: 
  Country: None (occurrence: None)
  Receive Date: 20080626
  Receipt Date: 20080304
  Transmission Date: 20081010
  Serious: No
  Sender: FDA-Public Use
  Company Number: A0677626A

PATIENT

DRUGS (2)
  1. ALLI [Suspect]
     Dates: end: 20071001
  2. MULTI-VITAMIN [Concomitant]

REACTIONS (5)
  - CONSTIPATION [None]
  - DIARRHOEA [None]
  - FLATULENCE [None]
  - FLUID RETENTION [None]
  - MIDDLE INSOMNIA [None]
